FAERS Safety Report 9448966 (Version 5)
Quarter: 2014Q1

REPORT INFORMATION
  Report Type: Report from Study
  Country: BR (occurrence: BR)
  Receive Date: 20130808
  Receipt Date: 20140320
  Transmission Date: 20141002
  Serious: Yes (Other)
  Sender: FDA-Public Use
  Company Number: PHHY2013BR085436

PATIENT
  Sex: Female
  Weight: 58 kg

DRUGS (2)
  1. ACLASTA [Suspect]
     Indication: OSTEOPOROSIS
     Dosage: UNK (1 APPLICATION )
     Route: 042
  2. PROLIA [Suspect]
     Indication: OSTEOPOROSIS
     Dosage: 1 DF, EVERY MONTH
     Route: 058

REACTIONS (5)
  - Fracture [Unknown]
  - Rheumatoid arthritis [Unknown]
  - Fibromyalgia [Unknown]
  - Osteoporosis [Unknown]
  - Disease recurrence [Not Recovered/Not Resolved]
